FAERS Safety Report 8150934-X (Version None)
Quarter: 2012Q1

REPORT INFORMATION
  Report Type: 
  Country: None (occurrence: None)
  Receive Date: 20120220
  Receipt Date: 20120210
  Transmission Date: 20120608
  Serious: Yes (Other)
  Sender: FDA-Public Use
  Company Number: US-ABBOTT-12P-163-0904554-00

PATIENT
  Sex: Male

DRUGS (10)
  1. HUMIRA [Suspect]
     Indication: CROHN'S DISEASE
     Route: 058
     Dates: start: 20080101, end: 20110801
  2. HUMIRA [Suspect]
     Route: 058
     Dates: end: 20110801
  3. ENTOCORT EC [Suspect]
     Indication: CROHN'S DISEASE
     Dates: start: 20111201
  4. PENICILLAMINE [Concomitant]
     Indication: HEPATO-LENTICULAR DEGENERATION
  5. FROVA [Concomitant]
     Indication: MIGRAINE
  6. KLONOPIN [Concomitant]
     Indication: ANXIETY
  7. NORCO [Concomitant]
     Indication: MIGRAINE
  8. MAXALT [Concomitant]
     Indication: MIGRAINE
  9. NORCO [Concomitant]
     Indication: ABDOMINAL PAIN
     Dosage: 10/325 1/2 - 1 TAB AS NEEDED
  10. ENTOCORT EC [Suspect]

REACTIONS (6)
  - ABSCESS [None]
  - CROHN'S DISEASE [None]
  - PNEUMOTHORAX [None]
  - MIGRAINE [None]
  - CHEST PAIN [None]
  - DRUG INEFFECTIVE [None]
